FAERS Safety Report 10595116 (Version 2)
Quarter: 2014Q4

REPORT INFORMATION
  Report Type: Spontaneous
  Country: GB (occurrence: GB)
  Receive Date: 20141120
  Receipt Date: 20141208
  Transmission Date: 20150529
  Serious: Yes (Life-Threatening)
  Sender: FDA-Public Use
  Company Number: GB-TEVA-521817ISR

PATIENT
  Age: 54 Year
  Sex: Male
  Weight: 93.8 kg

DRUGS (5)
  1. LEVOFLOXACIN. [Suspect]
     Active Substance: LEVOFLOXACIN
     Indication: LEGIONELLA INFECTION
     Dosage: 250 MILLIGRAM DAILY;
     Route: 042
     Dates: start: 20141007, end: 20141016
  2. RIFAMPICIN [Concomitant]
     Active Substance: RIFAMPIN
     Indication: LEGIONELLA INFECTION
     Route: 042
     Dates: start: 20141010, end: 20141014
  3. PROPOFOL. [Concomitant]
     Active Substance: PROPOFOL
     Indication: SEDATION
     Dates: start: 20141009
  4. ALFENTANIL [Concomitant]
     Active Substance: ALFENTANIL
     Indication: SEDATION
     Dates: start: 20141009
  5. CHLORHEXIDINE GLUCONATE. [Concomitant]
     Active Substance: CHLORHEXIDINE GLUCONATE
     Indication: PRODUCT USED FOR UNKNOWN INDICATION
     Dates: start: 20141010

REACTIONS (1)
  - Pulseless electrical activity [Recovered/Resolved]

NARRATIVE: CASE EVENT DATE: 20141016
